FAERS Safety Report 9608712 (Version 2)
Quarter: 2013Q4

REPORT INFORMATION
  Report Type: Report from Study
  Country: US (occurrence: US)
  Receive Date: 20131009
  Receipt Date: 20131126
  Transmission Date: 20140711
  Serious: Yes (Hospitalization)
  Sender: FDA-Public Use
  Company Number: US-JNJFOC-20131000628

PATIENT
  Sex: Female
  Weight: 89.36 kg

DRUGS (12)
  1. REMICADE [Suspect]
     Indication: CROHN^S DISEASE
     Route: 042
     Dates: start: 201302
  2. REMICADE [Suspect]
     Indication: COLITIS ULCERATIVE
     Route: 042
     Dates: start: 201302
  3. SYNTHROID [Concomitant]
     Route: 048
     Dates: start: 201301
  4. DILTIAZEM [Concomitant]
     Indication: BLOOD PRESSURE
     Route: 048
     Dates: start: 201301
  5. PROTONIX [Concomitant]
     Indication: GASTRIC DISORDER
     Route: 048
     Dates: start: 201301
  6. WARFARIN [Concomitant]
     Indication: THROMBOSIS
     Route: 048
     Dates: start: 201301
  7. ASACOL [Concomitant]
     Indication: GASTRIC DISORDER
     Route: 048
     Dates: start: 201301
  8. LORTAB [Concomitant]
     Indication: PAIN
     Route: 048
     Dates: start: 201301
  9. PROBIOTIC [Concomitant]
     Indication: DYSPEPSIA
     Route: 065
     Dates: start: 201301
  10. FERROUS SULFATE [Concomitant]
     Route: 065
     Dates: start: 201301
  11. ONDANSETRON [Concomitant]
     Indication: NAUSEA
     Route: 048
     Dates: start: 201301
  12. ZOLPIDEM [Concomitant]
     Indication: SLEEP DISORDER
     Route: 048
     Dates: start: 201301

REACTIONS (4)
  - Thrombosis [Recovered/Resolved]
  - Clostridium difficile infection [Recovered/Resolved]
  - Colitis ulcerative [Not Recovered/Not Resolved]
  - Crohn^s disease [Not Recovered/Not Resolved]
